FAERS Safety Report 7689932 (Version 3)
Quarter: 2013Q3

REPORT INFORMATION
  Report Type: Spontaneous
  Country: US (occurrence: US)
  Receive Date: 20101202
  Receipt Date: 20130924
  Transmission Date: 20140515
  Serious: Yes (Other)
  Sender: FDA-Public Use
  Company Number: US-JNJFOC-20101108120

PATIENT
  Sex: Male

DRUGS (4)
  1. NUCYNTA [Suspect]
     Indication: ANALGESIC THERAPY
     Route: 048
     Dates: start: 201011, end: 201011
  2. WELLBUTRIN [Suspect]
     Indication: PRODUCT USED FOR UNKNOWN INDICATION
     Route: 048
  3. PROZAC [Suspect]
     Indication: PRODUCT USED FOR UNKNOWN INDICATION
     Route: 048
  4. ZANAFLEX [Suspect]
     Indication: MUSCLE RELAXANT THERAPY
     Route: 048

REACTIONS (6)
  - Serotonin syndrome [Unknown]
  - Hypertension [Recovered/Resolved]
  - Depersonalisation [Unknown]
  - Aggression [Unknown]
  - Chills [Unknown]
  - Feeling abnormal [Unknown]
